FAERS Safety Report 24767668 (Version 1)
Quarter: 2024Q4

REPORT INFORMATION
  Report Type: Spontaneous
  Country: US (occurrence: None)
  Receive Date: 20241221
  Receipt Date: 20241221
  Transmission Date: 20250114
  Serious: Yes (Disabling)
  Sender: Public
  Company Number: None

PATIENT
  Age: 38 Year
  Sex: Male
  Weight: 96.75 kg

DRUGS (1)
  1. SERTRALINE HYDROCHLORIDE [Suspect]
     Active Substance: SERTRALINE HYDROCHLORIDE
     Indication: Anxiety
     Dosage: DAILY ORAL?
     Route: 048
     Dates: start: 20200101, end: 20230604

REACTIONS (5)
  - Genital hypoaesthesia [None]
  - Anhedonia [None]
  - Cognitive disorder [None]
  - Visual impairment [None]
  - Libido decreased [None]

NARRATIVE: CASE EVENT DATE: 20230604
